FAERS Safety Report 8820961 (Version 1)
Quarter: 2012Q4

REPORT INFORMATION
  Report Type: 
  Country: US (occurrence: US)
  Receive Date: 20121002
  Receipt Date: 20121002
  Transmission Date: 20130627
  Serious: No
  Sender: FDA-Public Use
  Company Number: US-VERTEX PHARMACEUTICAL INC.-2012-020718

PATIENT
  Age: 60 None
  Sex: Male
  Weight: 70 kg

DRUGS (5)
  1. INCIVEK [Suspect]
     Indication: HEPATITIS C
     Dosage: 2 DF, tid
     Route: 048
     Dates: start: 20120621
  2. RIBAVIRIN [Concomitant]
     Indication: HEPATITIS C
     Dosage: 2 DF, bid
     Route: 048
     Dates: start: 20120621
  3. PEGASYS [Concomitant]
     Indication: HEPATITIS C
     Dosage: UNK
     Route: 058
     Dates: start: 20120621
  4. CEPHALOSPORIN C [Concomitant]
     Indication: LIVER TRANSPLANT
     Dosage: 2 DF, qd
     Route: 048
  5. BP MEDS [Concomitant]
     Indication: BLOOD PRESSURE
     Route: 048

REACTIONS (6)
  - Drug dose omission [Unknown]
  - Underdose [Unknown]
  - Migraine [Not Recovered/Not Resolved]
  - Abdominal discomfort [Not Recovered/Not Resolved]
  - Haemoglobin decreased [Not Recovered/Not Resolved]
  - Proctalgia [Not Recovered/Not Resolved]
